FAERS Safety Report 25110288 (Version 1)
Quarter: 2025Q1

REPORT INFORMATION
  Report Type: Spontaneous
  Country: US (occurrence: US)
  Receive Date: 20250324
  Receipt Date: 20250324
  Transmission Date: 20250408
  Serious: No
  Sender: BOEHRINGER INGELHEIM
  Company Number: US-Komodo Health-a23aa000006Sfw1AAC

PATIENT
  Age: 67 Year
  Sex: Female

DRUGS (2)
  1. COMBIVENT [Suspect]
     Active Substance: ALBUTEROL SULFATE\IPRATROPIUM BROMIDE
     Indication: Chronic obstructive pulmonary disease
     Dosage: 1 PUFF AS NEEDED AS A RESCUE INHALER, NOT MORE THAN 3 TIMES A WEEK WHEN I DO USE IT
     Dates: start: 2020
  2. Brevtri [Concomitant]
     Indication: Chronic obstructive pulmonary disease

REACTIONS (3)
  - Device malfunction [Not Recovered/Not Resolved]
  - Dyspnoea [Not Recovered/Not Resolved]
  - Off label use [Unknown]

NARRATIVE: CASE EVENT DATE: 20250317
